FAERS Safety Report 7584092-7 (Version None)
Quarter: 2011Q2

REPORT INFORMATION
  Report Type: 
  Country: None (occurrence: None)
  Receive Date: 20110630
  Receipt Date: 20110617
  Transmission Date: 20111010
  Serious: Yes (Hospitalization)
  Sender: FDA-Public Use
  Company Number: JP-MERCK-1106USA02432

PATIENT
  Age: 71 Year
  Sex: Female

DRUGS (8)
  1. SINGULAIR [Concomitant]
     Route: 048
  2. EPLERENONE [Concomitant]
     Route: 065
  3. NORVASC [Concomitant]
     Route: 065
  4. ACTOS [Concomitant]
     Route: 065
  5. ZYRTEC [Concomitant]
     Route: 065
  6. JANUVIA [Suspect]
     Indication: TYPE 2 DIABETES MELLITUS
     Route: 048
     Dates: start: 20100313
  7. HYZAAR [Concomitant]
     Route: 048
  8. AMARYL [Concomitant]
     Route: 065

REACTIONS (1)
  - INTERSTITIAL LUNG DISEASE [None]
